FAERS Safety Report 7160091-4 (Version None)
Quarter: 2010Q4

REPORT INFORMATION
  Report Type: 
  Country: None (occurrence: None)
  Receive Date: 20101214
  Receipt Date: 20091122
  Transmission Date: 20110411
  Serious: No
  Sender: FDA-Public Use
  Company Number: US-AMGEN-TCS376207

PATIENT

DRUGS (2)
  1. ENBREL [Suspect]
     Indication: RHEUMATOID ARTHRITIS
     Dosage: 50 MG, QWK
     Route: 058
     Dates: start: 20090828
  2. ADALIMUMAB [Concomitant]
     Dosage: UNK UNK, UNK
     Dates: start: 20090918, end: 20091101

REACTIONS (7)
  - INJECTION SITE PAIN [None]
  - INJECTION SITE RASH [None]
  - NASOPHARYNGITIS [None]
  - NEOPLASM SKIN [None]
  - PNEUMONIA [None]
  - RHEUMATOID ARTHRITIS [None]
  - SINUS CONGESTION [None]
